FAERS Safety Report 11980537 (Version 3)
Quarter: 2016Q1

REPORT INFORMATION
  Report Type: Spontaneous
  Country: FR (occurrence: FR)
  Receive Date: 20160129
  Receipt Date: 20160218
  Transmission Date: 20160526
  Serious: Yes (Life-Threatening)
  Sender: FDA-Public Use
  Company Number: FR-EISAI MEDICAL RESEARCH-EC-2016-013910

PATIENT
  Age: 47 Year
  Sex: Male

DRUGS (7)
  1. FYCOMPA [Suspect]
     Active Substance: PERAMPANEL
     Route: 048
     Dates: start: 2015, end: 20151129
  2. LAMICTAL [Concomitant]
     Active Substance: LAMOTRIGINE
     Indication: COMPLEX PARTIAL SEIZURES
     Route: 065
     Dates: start: 2014
  3. URBANYL [Concomitant]
     Active Substance: CLOBAZAM
     Indication: COMPLEX PARTIAL SEIZURES
     Dosage: UNKNOWN
     Route: 065
     Dates: start: 2014
  4. ZOLPIDEM [Suspect]
     Active Substance: ZOLPIDEM\ZOLPIDEM TARTRATE
     Indication: PRODUCT USED FOR UNKNOWN INDICATION
     Dosage: UNKNOWN
     Route: 048
     Dates: start: 20160122, end: 20160122
  5. LAMICTAL [Concomitant]
     Active Substance: LAMOTRIGINE
     Route: 065
  6. FYCOMPA [Suspect]
     Active Substance: PERAMPANEL
     Route: 048
     Dates: start: 20151130, end: 20160125
  7. FYCOMPA [Suspect]
     Active Substance: PERAMPANEL
     Indication: COMPLEX PARTIAL SEIZURES
     Route: 048
     Dates: start: 20150905, end: 2015

REACTIONS (6)
  - Disinhibition [Recovered/Resolved]
  - Aggression [Recovered/Resolved]
  - Irritability [Recovered/Resolved]
  - Suicide attempt [Recovered/Resolved]
  - Suicidal ideation [Recovering/Resolving]
  - Depressed mood [Recovered/Resolved]

NARRATIVE: CASE EVENT DATE: 201512
